FAERS Safety Report 9999704 (Version 1)
Quarter: 2014Q1

REPORT INFORMATION
  Report Type: Spontaneous
  Country: NO (occurrence: NO)
  Receive Date: 20140312
  Receipt Date: 20140312
  Transmission Date: 20141002
  Serious: Yes (Life-Threatening, Hospitalization)
  Sender: FDA-Public Use
  Company Number: NO-UCBSA-113973

PATIENT
  Age: 67 Year
  Sex: Female

DRUGS (2)
  1. CIMZIA [Suspect]
     Indication: PSORIATIC ARTHROPATHY
     Route: 058
     Dates: start: 201305, end: 201307
  2. ENBREL [Suspect]
     Indication: PSORIATIC ARTHROPATHY
     Route: 058
     Dates: start: 201211, end: 201305

REACTIONS (2)
  - Glioblastoma [Recovering/Resolving]
  - Dizziness [Recovering/Resolving]
